FAERS Safety Report 8975741 (Version 2)
Quarter: 2013Q1

REPORT INFORMATION
  Report Type: Report from Study
  Country: CN (occurrence: CN)
  Receive Date: 20121219
  Receipt Date: 20130108
  Transmission Date: 20140127
  Serious: Yes (Hospitalization)
  Sender: FDA-Public Use
  Company Number: PHHO2012CN017972

PATIENT
  Age: 14 Year
  Sex: Female
  Weight: 34 kg

DRUGS (1)
  1. DESFERAL [Suspect]
     Indication: IRON OVERLOAD
     Dosage: 53 MG/KG, ONCE/SINGLE
     Dates: start: 20101217, end: 20121203

REACTIONS (1)
  - Pneumonia [Recovered/Resolved]
